FAERS Safety Report 6299703-6 (Version None)
Quarter: 2009Q3

REPORT INFORMATION
  Report Type: 
  Country: None (occurrence: None)
  Receive Date: 20090806
  Receipt Date: 20090728
  Transmission Date: 20100115
  Serious: Yes (Life-Threatening, Hospitalization, Disabling)
  Sender: FDA-Public Use
  Company Number: AU-PFIZER INC-2006143307

PATIENT
  Age: 71 Year

DRUGS (6)
  1. SUNITINIB MALATE [Suspect]
     Indication: GASTROINTESTINAL STROMAL TUMOUR
     Dosage: 37.5 MG, 1X/DAY
     Route: 048
     Dates: start: 20050801
  2. CLOTRIMAZOLE [Concomitant]
     Route: 061
     Dates: start: 20061025, end: 20061107
  3. GLYCEROL 2.6% [Concomitant]
     Route: 054
     Dates: start: 20061018
  4. DUROLAX [Concomitant]
     Route: 048
     Dates: start: 20061016
  5. ACETAMINOPHEN [Concomitant]
     Route: 048
     Dates: start: 20061025
  6. SOMAC [Concomitant]
     Route: 048
     Dates: start: 20061025

REACTIONS (4)
  - CEREBROVASCULAR ACCIDENT [None]
  - CONFUSIONAL STATE [None]
  - HYPERTENSION [None]
  - SKIN ULCER [None]
